FAERS Safety Report 23384056 (Version 1)
Quarter: 2024Q1

REPORT INFORMATION
  Report Type: Spontaneous
  Country: US (occurrence: None)
  Receive Date: 20240109
  Receipt Date: 20240109
  Transmission Date: 20240409
  Serious: Yes (Hospitalization)
  Sender: FDA-Public Use
  Company Number: None

PATIENT
  Age: 50 Year
  Sex: Female
  Weight: 83 kg

DRUGS (2)
  1. BELATACEPT [Suspect]
     Active Substance: BELATACEPT
     Indication: Renal transplant
     Dosage: OTHER FREQUENCY : Q28 DAYS;?
     Route: 042
  2. EVEROLIMUS [Suspect]
     Active Substance: EVEROLIMUS

REACTIONS (14)
  - Breast abscess [None]
  - Breast cellulitis [None]
  - Breast induration [None]
  - Bacteraemia [None]
  - Bacterial infection [None]
  - Bacterial infection [None]
  - Cough [None]
  - Actinomycosis [None]
  - Blood glucose increased [None]
  - Acute kidney injury [None]
  - Colitis [None]
  - Immunosuppression [None]
  - Renal transplant [None]
  - Therapy cessation [None]

NARRATIVE: CASE EVENT DATE: 20231204
